FAERS Safety Report 7473565-3 (Version None)
Quarter: 2011Q1

REPORT INFORMATION
  Report Type: 
  Country: None (occurrence: None)
  Receive Date: 20110302
  Receipt Date: 20101110
  Transmission Date: 20110831
  Serious: Yes (Other)
  Sender: FDA-Public Use
  Company Number: 163-21880-10081545

PATIENT
  Age: 70 Year
  Sex: Male

DRUGS (11)
  1. REVLIMID [Suspect]
  2. VICODIN [Concomitant]
  3. ATENOLOL [Concomitant]
  4. OMEPRAZOLE [Concomitant]
  5. ZOFRAN [Concomitant]
  6. TESTOSTERONE [Concomitant]
  7. AREDIA [Concomitant]
  8. IBUPROFEN [Concomitant]
  9. REVLIMID [Suspect]
     Indication: MULTIPLE MYELOMA
     Dosage: SEE IMAGE
     Route: 048
     Dates: start: 20100804
  10. REVLIMID [Suspect]
     Indication: MULTIPLE MYELOMA
     Dosage: SEE IMAGE
     Route: 048
     Dates: start: 20100728, end: 20100803
  11. REVLIMID [Suspect]
     Indication: MULTIPLE MYELOMA
     Dosage: SEE IMAGE
     Route: 048
     Dates: start: 20080301, end: 20080910

REACTIONS (8)
  - ACNE [None]
  - PRURITUS [None]
  - HEADACHE [None]
  - EYELID OEDEMA [None]
  - RASH [None]
  - FACE OEDEMA [None]
  - FATIGUE [None]
  - HYPOTENSION [None]
